FAERS Safety Report 7035314-2 (Version None)
Quarter: 2010Q4

REPORT INFORMATION
  Report Type: 
  Country: None (occurrence: None)
  Receive Date: 20101008
  Receipt Date: 20100930
  Transmission Date: 20110411
  Serious: Yes (Death)
  Sender: FDA-Public Use
  Company Number: B0677447A

PATIENT
  Age: 64 Year
  Sex: Female
  Weight: 100 kg

DRUGS (9)
  1. AVANDAMET [Suspect]
     Dosage: 4MG TWICE PER DAY
     Route: 048
     Dates: start: 20050301
  2. NISIS [Concomitant]
  3. METFORMIN HCL [Concomitant]
     Dosage: 1000MG PER DAY
  4. BEFIZAL [Concomitant]
  5. LEVOTHYROXINE SODIUM [Concomitant]
  6. VEINAMITOL [Concomitant]
  7. DOLIPRANE [Concomitant]
  8. NULYTELY [Concomitant]
  9. ART 50 [Concomitant]

REACTIONS (1)
  - DEATH [None]
